FAERS Safety Report 14786674 (Version 6)
Quarter: 2020Q1

REPORT INFORMATION
  Report Type: Spontaneous
  Country: US (occurrence: US)
  Receive Date: 20180420
  Receipt Date: 20200312
  Transmission Date: 20200409
  Serious: Yes (Other)
  Sender: FDA-Public Use
  Company Number: US-ASTRAZENECA-2018SE47301

PATIENT
  Age: 67 Year
  Sex: Female
  Weight: 79.8 kg

DRUGS (53)
  1. NEXIUM [Suspect]
     Active Substance: ESOMEPRAZOLE MAGNESIUM
     Indication: HERPES DERMATITIS
     Route: 048
     Dates: start: 20120104
  2. CELEBREX [Concomitant]
     Active Substance: CELECOXIB
  3. LEXAPRO [Concomitant]
     Active Substance: ESCITALOPRAM OXALATE
     Indication: MUSCLE SPASMS
     Dates: start: 2007
  4. ALEVE [Concomitant]
     Active Substance: NAPROXEN SODIUM
     Dates: start: 2015
  5. COLLAGEN [Concomitant]
     Active Substance: COLLAGEN
     Indication: BONE DISORDER
  6. PRILOSEC OTC [Suspect]
     Active Substance: OMEPRAZOLE MAGNESIUM
     Route: 048
     Dates: start: 2008, end: 2016
  7. PREVACID [Suspect]
     Active Substance: LANSOPRAZOLE
     Indication: APHTHOUS ULCER
     Route: 065
     Dates: start: 2008, end: 2016
  8. PROTONIX [Suspect]
     Active Substance: PANTOPRAZOLE SODIUM
     Route: 065
     Dates: start: 2008, end: 2016
  9. CARAFATE [Concomitant]
     Active Substance: SUCRALFATE
     Dates: start: 2011
  10. MAGNESIUM [Concomitant]
     Active Substance: MAGNESIUM
  11. ATIVAN [Concomitant]
     Active Substance: LORAZEPAM
  12. PLAQUENIL [Concomitant]
     Active Substance: HYDROXYCHLOROQUINE SULFATE
  13. LYSINE [Concomitant]
     Active Substance: LYSINE
     Dates: start: 2015
  14. OXYCONTIN [Concomitant]
     Active Substance: OXYCODONE HYDROCHLORIDE
     Indication: PAIN
     Dates: start: 2015
  15. VITAMIN D [Concomitant]
     Active Substance: VITAMIN D NOS
     Indication: BONE DISORDER
  16. NEXIUM 24HR [Suspect]
     Active Substance: ESOMEPRAZOLE MAGNESIUM
     Route: 048
     Dates: start: 2008, end: 2016
  17. DEXILANT [Suspect]
     Active Substance: DEXLANSOPRAZOLE
     Indication: APHTHOUS ULCER
     Route: 065
     Dates: start: 2008, end: 2016
  18. DEXILANT [Suspect]
     Active Substance: DEXLANSOPRAZOLE
     Indication: APHTHOUS ULCER
     Route: 065
     Dates: start: 20130410, end: 20131006
  19. PERCOCET [Concomitant]
     Active Substance: ACETAMINOPHEN\OXYCODONE HYDROCHLORIDE
  20. KLOR-CON [Concomitant]
     Active Substance: POTASSIUM CHLORIDE
     Indication: BLOOD POTASSIUM
  21. MYRBETRIQ [Concomitant]
     Active Substance: MIRABEGRON
     Indication: BLADDER DISORDER
     Dates: start: 2015
  22. ESTRADIOL. [Concomitant]
     Active Substance: ESTRADIOL
     Indication: BLOOD OESTROGEN
     Dates: start: 1972
  23. MULTIVITAMIN [Concomitant]
     Active Substance: VITAMINS
     Indication: HYPOVITAMINOSIS
  24. LYSINE [Concomitant]
     Active Substance: LYSINE
     Indication: ORAL HERPES
  25. PREVACID [Suspect]
     Active Substance: LANSOPRAZOLE
     Indication: APHTHOUS ULCER
     Route: 065
     Dates: start: 2012
  26. HYDROCODONE BITARTRATE AND ACETAMINOPHEN [Concomitant]
     Active Substance: ACETAMINOPHEN\HYDROCODONE BITARTRATE
  27. BENTYL [Concomitant]
     Active Substance: DICYCLOMINE HYDROCHLORIDE
     Indication: MUSCLE RELAXANT THERAPY
     Dates: start: 2013
  28. DICLOFENAC [Concomitant]
     Active Substance: DICLOFENAC
     Indication: RESTLESS LEGS SYNDROME
     Dates: start: 2019
  29. MODAFINIL. [Concomitant]
     Active Substance: MODAFINIL
     Indication: SLEEP DISORDER
     Dates: start: 2015
  30. PREVACID [Suspect]
     Active Substance: LANSOPRAZOLE
     Indication: APHTHOUS ULCER
     Route: 065
     Dates: start: 2007, end: 2014
  31. OXYCODONE [Concomitant]
     Active Substance: OXYCODONE
     Indication: PAIN
     Dates: start: 2015
  32. DICLOFENAC SODIUM. [Concomitant]
     Active Substance: DICLOFENAC SODIUM
     Indication: RESTLESS LEGS SYNDROME
     Dates: start: 201902
  33. NEXIUM [Suspect]
     Active Substance: ESOMEPRAZOLE MAGNESIUM
     Indication: HERPES DERMATITIS
     Route: 048
     Dates: start: 2012, end: 201901
  34. NEXIUM [Suspect]
     Active Substance: ESOMEPRAZOLE MAGNESIUM
     Indication: HERPES DERMATITIS
     Route: 048
     Dates: start: 20130410, end: 20131006
  35. PRILOSEC [Suspect]
     Active Substance: OMEPRAZOLE MAGNESIUM
     Route: 048
     Dates: start: 2008, end: 2016
  36. DEXILANT [Suspect]
     Active Substance: DEXLANSOPRAZOLE
     Indication: APHTHOUS ULCER
     Dosage: NIGHT
     Route: 065
     Dates: start: 2014
  37. VITAMIN B [Concomitant]
     Active Substance: VITAMIN B
  38. EVISTA [Concomitant]
     Active Substance: RALOXIFENE HYDROCHLORIDE
     Indication: MENOPAUSE
     Dates: start: 2014
  39. MELOXICAM. [Concomitant]
     Active Substance: MELOXICAM
     Indication: ARTHRITIS
     Dates: start: 2015
  40. CALCIUM [Concomitant]
     Active Substance: CALCIUM
     Dates: start: 2015
  41. TRAMADOL. [Concomitant]
     Active Substance: TRAMADOL
     Indication: PAIN
     Dates: start: 2014
  42. VITAMIN B12 [Concomitant]
     Active Substance: CYANOCOBALAMIN
     Indication: BLOOD POTASSIUM DECREASED
     Dates: start: 1980
  43. NEXIUM [Suspect]
     Active Substance: ESOMEPRAZOLE MAGNESIUM
     Indication: HERPES DERMATITIS
     Dosage: DAILY
     Route: 048
     Dates: start: 2014, end: 201901
  44. DEXILANT [Suspect]
     Active Substance: DEXLANSOPRAZOLE
     Indication: APHTHOUS ULCER
     Route: 065
     Dates: start: 2012
  45. PREVACID [Suspect]
     Active Substance: LANSOPRAZOLE
     Indication: APHTHOUS ULCER
     Dosage: GENERIC
     Route: 065
     Dates: start: 2009, end: 2012
  46. PREVACID 24 HR [Suspect]
     Active Substance: LANSOPRAZOLE
     Route: 065
     Dates: start: 2008, end: 2016
  47. MECLIZINE [Concomitant]
     Active Substance: MECLIZINE HYDROCHLORIDE
     Indication: MOTION SICKNESS
     Dates: start: 2013
  48. COLACE [Concomitant]
     Active Substance: DOCUSATE SODIUM
  49. CARDIZEM [Concomitant]
     Active Substance: DILTIAZEM HYDROCHLORIDE
     Indication: CARDIAC DISORDER
  50. BENTYL [Concomitant]
     Active Substance: DICYCLOMINE HYDROCHLORIDE
     Dates: start: 2013
  51. NEXIUM [Suspect]
     Active Substance: ESOMEPRAZOLE MAGNESIUM
     Indication: HERPES DERMATITIS
     Route: 048
     Dates: start: 2008, end: 2016
  52. DEXILANT [Suspect]
     Active Substance: DEXLANSOPRAZOLE
     Indication: APHTHOUS ULCER
     Dosage: MORNING
     Route: 065
     Dates: start: 2014
  53. PREVACID [Suspect]
     Active Substance: LANSOPRAZOLE
     Indication: APHTHOUS ULCER
     Route: 065
     Dates: start: 2009, end: 2014

REACTIONS (6)
  - Renal injury [Unknown]
  - Renal impairment [Unknown]
  - Chronic kidney disease [Not Recovered/Not Resolved]
  - Rebound acid hypersecretion [Unknown]
  - Acute kidney injury [Not Recovered/Not Resolved]
  - Renal failure [Not Recovered/Not Resolved]

NARRATIVE: CASE EVENT DATE: 2013
